FAERS Safety Report 9003490 (Version 1)
Quarter: 2013Q1

REPORT INFORMATION
  Report Type: Spontaneous
  Country: US (occurrence: US)
  Receive Date: 20130108
  Receipt Date: 20130108
  Transmission Date: 20140127
  Serious: No
  Sender: FDA-Public Use
  Company Number: US-TEVA-378560USA

PATIENT
  Age: 67 Year
  Sex: Male
  Weight: 89.44 kg

DRUGS (3)
  1. QNASL [Suspect]
     Indication: RHINITIS ALLERGIC
     Dosage: 2 SPRAYS IN RIGHT NOSTRIL
     Route: 045
     Dates: start: 20121227
  2. AMOXICILLIN [Concomitant]
     Indication: INFECTION
     Dosage: 1750 MILLIGRAM DAILY;
     Route: 048
     Dates: start: 20121227
  3. SALINE NASAL SPRAY [Concomitant]
     Dosage: 2 SPAYS PER NOSTRIL TWICE DAILY
     Route: 045

REACTIONS (2)
  - Nasal inflammation [Not Recovered/Not Resolved]
  - Acne [Not Recovered/Not Resolved]
